FAERS Safety Report 6595688-3 (Version None)
Quarter: 2010Q1

REPORT INFORMATION
  Report Type: 
  Country: None (occurrence: None)
  Receive Date: 20100223
  Receipt Date: 20100105
  Transmission Date: 20100710
  Serious: Yes (Death)
  Sender: FDA-Public Use
  Company Number: US-TYCO HEALTHCARE/MALLINCKRODT-T201000430

PATIENT
  Age: 66 Year
  Sex: Female

DRUGS (9)
  1. OXYCODONE [Suspect]
     Route: 048
  2. BENZODIAZEPINE [Suspect]
     Route: 048
  3. ETHANOL [Suspect]
     Route: 048
  4. ACETAMINOPHEN [Suspect]
     Route: 048
  5. SALICYLATES NOS [Suspect]
     Route: 048
  6. CHLORDIAZEPOXIDE W/CLIDINIUM [Suspect]
     Route: 048
  7. BENZONATATE [Suspect]
     Route: 048
  8. DRUG, UNKNOWN [Suspect]
     Route: 048
  9. CHLOROTHIAZIDE [Suspect]
     Route: 048

REACTIONS (1)
  - CARDIO-RESPIRATORY ARREST [None]
